FAERS Safety Report 10276215 (Version 1)
Quarter: 2014Q3

REPORT INFORMATION
  Report Type: Spontaneous
  Country: US (occurrence: US)
  Receive Date: 20140703
  Receipt Date: 20140703
  Transmission Date: 20150326
  Serious: Yes (Hospitalization, Other)
  Sender: FDA-Public Use
  Company Number: US-PFIZER INC-2014183236

PATIENT
  Age: 46 Year
  Sex: Female
  Weight: 79.37 kg

DRUGS (2)
  1. LYRICA [Suspect]
     Active Substance: PREGABALIN
     Indication: FIBROMYALGIA
     Dosage: 400 MG, 1X/DAY(200MG X2)
     Route: 048
     Dates: end: 201406
  2. METHADONE [Concomitant]
     Active Substance: METHADONE HYDROCHLORIDE
     Dosage: 5 MG, 2X/DAY

REACTIONS (13)
  - Drug withdrawal syndrome [Unknown]
  - Malignant melanoma [Unknown]
  - Impaired work ability [Unknown]
  - Malaise [Unknown]
  - Insomnia [Unknown]
  - Precancerous skin lesion [Unknown]
  - Aphagia [Unknown]
  - Gait disturbance [Unknown]
  - Memory impairment [Unknown]
  - Muscle contracture [Unknown]
  - Pain [Unknown]
  - Altered state of consciousness [Unknown]
  - Vitamin D deficiency [Recovered/Resolved]

NARRATIVE: CASE EVENT DATE: 2014
